FAERS Safety Report 6480677-X (Version None)
Quarter: 2009Q4

REPORT INFORMATION
  Report Type: 
  Country: None (occurrence: None)
  Receive Date: 20091208
  Receipt Date: 20091201
  Transmission Date: 20100525
  Serious: Yes (Death)
  Sender: FDA-Public Use
  Company Number: BR-PFIZER INC-2009304654

PATIENT
  Age: 31 Year
  Sex: Male

DRUGS (6)
  1. REVATIO [Suspect]
     Indication: PULMONARY ARTERIAL HYPERTENSION
     Dosage: 20 MG, 3X/DAY
     Route: 048
     Dates: start: 20060519, end: 20090826
  2. DIGOXIN [Concomitant]
  3. LASIX [Concomitant]
  4. ALDACTONE [Concomitant]
  5. CARVEDILOL [Concomitant]
  6. AAS [Concomitant]

REACTIONS (6)
  - BLOOD PRESSURE DECREASED [None]
  - CARDIAC FAILURE [None]
  - CARDIAC VALVE DISEASE [None]
  - CARDIOGENIC SHOCK [None]
  - GENERAL PHYSICAL HEALTH DETERIORATION [None]
  - RENAL FAILURE [None]
